FAERS Safety Report 8192166-5 (Version None)
Quarter: 2012Q1

REPORT INFORMATION
  Report Type: 
  Country: None (occurrence: None)
  Receive Date: 20120307
  Receipt Date: 20120229
  Transmission Date: 20120608
  Serious: Yes (Hospitalization, Other)
  Sender: FDA-Public Use
  Company Number: JP-PFIZER INC-2012050370

PATIENT
  Age: 40 Year
  Sex: Male

DRUGS (1)
  1. ZITHROMAX [Suspect]
     Indication: BRONCHITIS
     Dosage: UNK
     Route: 048
     Dates: start: 20120213

REACTIONS (2)
  - EOSINOPHILIC PNEUMONIA [None]
  - ASTHMA [None]
